FAERS Safety Report 10719652 (Version 2)
Quarter: 2015Q1

REPORT INFORMATION
  Report Type: Spontaneous
  Country: US (occurrence: US)
  Receive Date: 20150119
  Receipt Date: 20150119
  Transmission Date: 20150721
  Serious: Yes (Other)
  Sender: FDA-Public Use
  Company Number: US-UNITED THERAPEUTICS-UTC-048276

PATIENT
  Age: 70 Year
  Sex: Male
  Weight: 110.66 kg

DRUGS (6)
  1. REVATIO [Concomitant]
     Active Substance: SILDENAFIL CITRATE
     Indication: PRODUCT USED FOR UNKNOWN INDICATION
  2. COUMADIN [Concomitant]
     Active Substance: WARFARIN SODIUM
     Indication: PRODUCT USED FOR UNKNOWN INDICATION
  3. REMODULIN [Suspect]
     Active Substance: TREPROSTINIL
     Indication: COR PULMONALE CHRONIC
     Dosage: 0.074 ?G/KG,CONTINUING
     Route: 041
     Dates: start: 20100922
  4. LETAIRIS [Suspect]
     Active Substance: AMBRISENTAN
     Indication: PRODUCT USED FOR UNKNOWN INDICATION
     Dosage: 10 MG, QD
     Dates: start: 20140317
  5. REMODULIN [Suspect]
     Active Substance: TREPROSTINIL
     Indication: HEPATIC CIRRHOSIS
     Dosage: 0.074 UG/KG/MIN, CONTINUING
     Route: 058
     Dates: start: 20110219
  6. REMODULIN [Suspect]
     Active Substance: TREPROSTINIL
     Dosage: UNK
     Route: 041

REACTIONS (8)
  - Injection site discharge [Unknown]
  - Dyspnoea [Recovered/Resolved]
  - Cellulitis [Unknown]
  - Infusion site swelling [Unknown]
  - Drug dose omission [Recovered/Resolved]
  - Dysgeusia [Unknown]
  - Infusion site erythema [Unknown]
  - Infusion site haemorrhage [Unknown]

NARRATIVE: CASE EVENT DATE: 201404
